FAERS Safety Report 17631840 (Version 1)
Quarter: 2020Q2

REPORT INFORMATION
  Report Type: Spontaneous
  Country: US (occurrence: US)
  Receive Date: 20200403
  Receipt Date: 20200403
  Transmission Date: 20200713
  Serious: Yes (Hospitalization)
  Sender: FDA-Public Use
  Company Number: None

PATIENT
  Age: 58 Year
  Sex: Female
  Weight: 127.7 kg

DRUGS (1)
  1. ASPIRIN. [Suspect]
     Active Substance: ASPIRIN
     Dates: end: 20200313

REACTIONS (7)
  - Limb injury [None]
  - Wound [None]
  - Chills [None]
  - Cellulitis [None]
  - Pyrexia [None]
  - Soft tissue swelling [None]
  - Blood sodium decreased [None]

NARRATIVE: CASE EVENT DATE: 20200314
